APPROVED DRUG PRODUCT: TRAZODONE HYDROCHLORIDE
Active Ingredient: TRAZODONE HYDROCHLORIDE
Strength: 100MG
Dosage Form/Route: TABLET;ORAL
Application: A071406 | Product #001
Applicant: NATCO PHARMA LTD
Approved: Feb 27, 1991 | RLD: No | RS: No | Type: DISCN